FAERS Safety Report 10948088 (Version 1)
Quarter: 2015Q1

REPORT INFORMATION
  Report Type: Spontaneous
  Country: US (occurrence: None)
  Receive Date: 20150225
  Receipt Date: 20150225
  Transmission Date: 20150721
  Serious: Yes (Other)
  Sender: FDA-Public Use
  Company Number: 2014-US004373

PATIENT
  Age: 36 Year
  Sex: Female
  Weight: 47.6 kg

DRUGS (1)
  1. PRIALT [Suspect]
     Active Substance: ZICONOTIDE ACETATE
     Indication: COMPLEX REGIONAL PAIN SYNDROME
     Dates: start: 201206, end: 201306

REACTIONS (4)
  - Hallucination [None]
  - Hallucination, auditory [None]
  - Sensation of foreign body [None]
  - Decreased appetite [None]
